FAERS Safety Report 23168321 (Version 1)
Quarter: 2023Q4

REPORT INFORMATION
  Report Type: Spontaneous
  Country: NL (occurrence: NL)
  Receive Date: 20231110
  Receipt Date: 20231110
  Transmission Date: 20240110
  Serious: Yes (Death)
  Sender: FDA-Public Use
  Company Number: NL-BIOGEN-2023BI01235084

PATIENT
  Age: 73 Year
  Sex: Female

DRUGS (1)
  1. DALFAMPRIDINE [Suspect]
     Active Substance: DALFAMPRIDINE
     Indication: Multiple sclerosis
     Route: 050
     Dates: start: 20210628, end: 20230520

REACTIONS (1)
  - Death [Fatal]

NARRATIVE: CASE EVENT DATE: 20230520
